FAERS Safety Report 15201999 (Version 1)
Quarter: 2018Q3

REPORT INFORMATION
  Report Type: Spontaneous
  Country: DE (occurrence: DE)
  Receive Date: 20180726
  Receipt Date: 20180726
  Transmission Date: 20181010
  Serious: Yes (Death, Other)
  Sender: FDA-Public Use
  Company Number: DE-SA-2018SA164807

PATIENT
  Sex: Male

DRUGS (14)
  1. SIMVASTATIN. [Suspect]
     Active Substance: SIMVASTATIN
     Route: 065
  2. DONEPEZIL HYDROCHLORIDE. [Suspect]
     Active Substance: DONEPEZIL HYDROCHLORIDE
     Route: 065
  3. TOREM COR [Suspect]
     Active Substance: TORSEMIDE
     Route: 065
  4. FALITHROM [Suspect]
     Active Substance: PHENPROCOUMON
     Route: 065
  5. METFORMIN [METFORMIN HYDROCHLORIDE] [Suspect]
     Active Substance: METFORMIN HYDROCHLORIDE
     Route: 065
  6. LEVOMEPROMAZINUM [Suspect]
     Active Substance: LEVOMEPROMAZINE
     Route: 065
  7. RISPERDAL [Suspect]
     Active Substance: RISPERIDONE
     Route: 065
  8. SEROQUEL [Suspect]
     Active Substance: QUETIAPINE FUMARATE
  9. ALLOPURINOL. [Suspect]
     Active Substance: ALLOPURINOL
     Route: 065
  10. LANTUS [Suspect]
     Active Substance: INSULIN GLARGINE
     Route: 065
  11. APIDRA [Suspect]
     Active Substance: INSULIN GLULISINE
     Route: 065
  12. BISOPROLOL [Suspect]
     Active Substance: BISOPROLOL
     Route: 065
  13. TAMSULOSIN HYDROCHLORIDE. [Suspect]
     Active Substance: TAMSULOSIN HYDROCHLORIDE
     Route: 065
  14. CANDECOR COMP [Suspect]
     Active Substance: CANDESARTAN CILEXETIL\HYDROCHLOROTHIAZIDE
     Route: 065

REACTIONS (8)
  - Renal failure [Unknown]
  - Contraindicated product administered [Unknown]
  - Urinary incontinence [Unknown]
  - Cognitive disorder [Unknown]
  - Blood glucose fluctuation [Unknown]
  - Gastrointestinal haemorrhage [Unknown]
  - Balance disorder [Unknown]
  - Haematoma [Unknown]
